FAERS Safety Report 8013841-9 (Version None)
Quarter: 2011Q4

REPORT INFORMATION
  Report Type: 
  Country: None (occurrence: None)
  Receive Date: 20111229
  Receipt Date: 20111221
  Transmission Date: 20120403
  Serious: Yes (Hospitalization)
  Sender: FDA-Public Use
  Company Number: PHHY2011JP110101

PATIENT
  Age: 85 Year
  Sex: Female

DRUGS (2)
  1. EXELON [Suspect]
     Dosage: 9 MG/24 HOURS
     Route: 062
     Dates: start: 20111211, end: 20111215
  2. EXELON [Suspect]
     Indication: DEMENTIA ALZHEIMER'S TYPE
     Dosage: 4.5 MG/24 HOURS
     Route: 062
     Dates: start: 20111111, end: 20111210

REACTIONS (1)
  - BLISTER [None]
